FAERS Safety Report 6166344-0 (Version None)
Quarter: 2009Q2

REPORT INFORMATION
  Report Type: 
  Country: None (occurrence: None)
  Receive Date: 20090422
  Receipt Date: 20090422
  Transmission Date: 20091009
  Serious: No
  Sender: FDA-Public Use
  Company Number: None

PATIENT
  Sex: Female
  Weight: 99.09 kg

DRUGS (2)
  1. STRATTERA [Suspect]
     Dosage: 25MG CAPSULE 50 MG QAM ORAL
     Route: 048
     Dates: start: 20081022, end: 20090421
  2. ADDERALL XR 20 [Concomitant]

REACTIONS (1)
  - WEIGHT INCREASED [None]
